FAERS Safety Report 4366987-0 (Version None)
Quarter: 2004Q2

REPORT INFORMATION
  Report Type: 
  Country: None (occurrence: None)
  Receive Date: 20040524
  Receipt Date: 20040510
  Transmission Date: 20050107
  Serious: Yes (Hospitalization, Other)
  Sender: FDA-Public Use
  Company Number: 2004031514

PATIENT
  Age: 18 Year
  Sex: Female
  Weight: 46 kg

DRUGS (2)
  1. GEODON [Suspect]
     Indication: ILL-DEFINED DISORDER
     Dosage: 100 MG (2 IN 1 D), ORAL
     Route: 048
  2. LANSOPRAZOLE [Concomitant]

REACTIONS (1)
  - PANCREATITIS [None]
